FAERS Safety Report 9485768 (Version 1)
Quarter: 2013Q3

REPORT INFORMATION
  Report Type: Spontaneous
  Country: US (occurrence: None)
  Receive Date: 20130827
  Receipt Date: 20130827
  Transmission Date: 20140515
  Serious: No
  Sender: FDA-Public Use
  Company Number: None

PATIENT
  Age: 71 Year
  Sex: Female

DRUGS (2)
  1. ZOCOR [Suspect]
  2. SIMVASTATIN [Concomitant]

REACTIONS (7)
  - Hypoaesthesia [None]
  - Lymphocytosis [None]
  - Blood glucose increased [None]
  - Fatigue [None]
  - Headache [None]
  - Skin lesion [None]
  - Skin irritation [None]
